FAERS Safety Report 24955848 (Version 1)
Quarter: 2025Q1

REPORT INFORMATION
  Report Type: Spontaneous
  Country: US (occurrence: US)
  Receive Date: 20250211
  Receipt Date: 20250211
  Transmission Date: 20250409
  Serious: Yes (Hospitalization)
  Sender: INCYTE
  Company Number: US-EVENT-001612

PATIENT

DRUGS (1)
  1. OPZELURA [Suspect]
     Active Substance: RUXOLITINIB PHOSPHATE
     Indication: Product used for unknown indication
     Dosage: 1.5 PERCENT, BID (APPLY TOPICALLY TO AFFECTED AREA(S) IN THE MORNING AND BEFORE BEDTIME AS DIRECTED)
     Route: 061
     Dates: start: 202405

REACTIONS (1)
  - Dehydration [Unknown]
